FAERS Safety Report 6988143-X (Version None)
Quarter: 2010Q3

REPORT INFORMATION
  Report Type: 
  Country: None (occurrence: None)
  Receive Date: 20100916
  Receipt Date: 20100903
  Transmission Date: 20110219
  Serious: Yes (Hospitalization)
  Sender: FDA-Public Use
  Company Number: PHHY2010US57497

PATIENT
  Sex: Female

DRUGS (2)
  1. RECLAST [Suspect]
     Dosage: UNK
     Dates: start: 20091201
  2. CITRICAL [Concomitant]

REACTIONS (9)
  - BLOOD CALCIUM DECREASED [None]
  - DECREASED APPETITE [None]
  - DYSURIA [None]
  - GASTROINTESTINAL DISORDER [None]
  - INFLUENZA [None]
  - MALAISE [None]
  - NAUSEA [None]
  - PAIN [None]
  - PYREXIA [None]
